FAERS Safety Report 10584676 (Version 1)
Quarter: 2014Q4

REPORT INFORMATION
  Report Type: Spontaneous
  Country: US (occurrence: None)
  Receive Date: 20141112
  Receipt Date: 20141112
  Transmission Date: 20150529
  Serious: Yes (Other)
  Sender: FDA-Public Use
  Company Number: 2014SA105702

PATIENT
  Age: 56 Year
  Sex: Female

DRUGS (2)
  1. AUBAGIO [Suspect]
     Active Substance: TERIFLUNOMIDE
     Indication: MULTIPLE SCLEROSIS
     Route: 048
     Dates: start: 20140722
  2. AVONEX [Concomitant]
     Active Substance: INTERFERON BETA-1A

REACTIONS (19)
  - Urinary incontinence [None]
  - Pain in extremity [None]
  - Cartilage injury [None]
  - Vertigo [None]
  - Fatigue [None]
  - Frustration [None]
  - Nausea [None]
  - Family stress [None]
  - Aggression [None]
  - Depression [None]
  - Aphasia [None]
  - Headache [None]
  - Hordeolum [None]
  - Yawning [None]
  - Retinal disorder [None]
  - Drug dose omission [None]
  - Nerve injury [None]
  - Gastrointestinal disorder [None]
  - Diarrhoea [None]

NARRATIVE: CASE EVENT DATE: 201408
